FAERS Safety Report 8017528-8 (Version None)
Quarter: 2011Q4

REPORT INFORMATION
  Report Type: 
  Country: None (occurrence: None)
  Receive Date: 20111228
  Receipt Date: 20111228
  Transmission Date: 20120403
  Serious: Yes (Life-Threatening)
  Sender: FDA-Public Use
  Company Number: None

PATIENT
  Sex: Female
  Weight: 45.3597 kg

DRUGS (2)
  1. PAXIL [Suspect]
     Dosage: 5MG ONCE A DAY
     Dates: start: 20111130
  2. PAXIL [Suspect]
     Dosage: 5MG ONCE A DAY
     Dates: start: 20111122

REACTIONS (7)
  - FREQUENT BOWEL MOVEMENTS [None]
  - PRODUCT FORMULATION ISSUE [None]
  - MOVEMENT DISORDER [None]
  - FEAR [None]
  - SPEECH DISORDER [None]
  - DRUG DEPENDENCE [None]
  - PRODUCT QUALITY ISSUE [None]
